FAERS Safety Report 20181239 (Version 1)
Quarter: 2021Q4

REPORT INFORMATION
  Report Type: Spontaneous
  Country: US (occurrence: None)
  Receive Date: 20211213
  Receipt Date: 20211213
  Transmission Date: 20220303
  Serious: Yes (Hospitalization)
  Sender: FDA-Public Use
  Company Number: None

PATIENT
  Age: 37 Year
  Sex: Female
  Weight: 69.3 kg

DRUGS (1)
  1. DYSPORT [Suspect]
     Active Substance: ABOBOTULINUMTOXINA

REACTIONS (5)
  - Panic attack [None]
  - Myalgia [None]
  - Anxiety [None]
  - Intrusive thoughts [None]
  - Fatigue [None]

NARRATIVE: CASE EVENT DATE: 20210709
